FAERS Safety Report 12647921 (Version 1)
Quarter: 2016Q3

REPORT INFORMATION
  Report Type: Spontaneous
  Country: US (occurrence: None)
  Receive Date: 20160811
  Receipt Date: 20160811
  Transmission Date: 20161109
  Serious: Yes (Hospitalization)
  Sender: FDA-Public Use
  Company Number: None

PATIENT
  Age: 1 Year
  Sex: Male

DRUGS (11)
  1. PREDNISOLONE. [Concomitant]
     Active Substance: PREDNISOLONE
  2. HYPERSAL [Concomitant]
  3. KITABIS PAK [Suspect]
     Active Substance: TOBRAMYCIN
     Indication: RESPIRATORY DISORDER
     Dosage: NEB
     Dates: start: 20160226
  4. LORATADINE. [Concomitant]
     Active Substance: LORATADINE
  5. LEVOFLOXACIN. [Concomitant]
     Active Substance: LEVOFLOXACIN
  6. TRIAMCINDONE [Concomitant]
  7. SODCNI [Concomitant]
  8. QVAR [Concomitant]
     Active Substance: BECLOMETHASONE DIPROPIONATE
  9. RANITIDINE. [Concomitant]
     Active Substance: RANITIDINE
  10. NYSTATIN. [Concomitant]
     Active Substance: NYSTATIN
  11. AMOXICILLIN. [Concomitant]
     Active Substance: AMOXICILLIN

REACTIONS (1)
  - Hospitalisation [None]
